FAERS Safety Report 4768265-4 (Version None)
Quarter: 2005Q3

REPORT INFORMATION
  Report Type: 
  Country: None (occurrence: None)
  Receive Date: 20050912
  Receipt Date: 20050901
  Transmission Date: 20060218
  Serious: Yes (Other)
  Sender: FDA-Public Use
  Company Number: CERZ-10970

PATIENT
  Age: 44 Year
  Sex: Female
  Weight: 68.9467 kg

DRUGS (2)
  1. CEREZYME [Suspect]
     Indication: GAUCHER'S DISEASE
     Dosage: 45 U/KG Q2WS IV
     Route: 042
     Dates: start: 20030318
  2. LIDOCAINE CREAM (4%) [Concomitant]

REACTIONS (2)
  - BREAST CANCER IN SITU [None]
  - POSTOPERATIVE FEVER [None]
